FAERS Safety Report 4882492-7 (Version None)
Quarter: 2006Q1

REPORT INFORMATION
  Report Type: 
  Country: None (occurrence: None)
  Receive Date: 20060113
  Receipt Date: 20060104
  Transmission Date: 20060701
  Serious: Yes (Hospitalization, Other)
  Sender: FDA-Public Use
  Company Number: 2005043330

PATIENT
  Age: 53 Year
  Sex: Female

DRUGS (12)
  1. DOSTINEX [Suspect]
     Indication: PITUITARY TUMOUR
     Dosage: 0.5 MG, 1/2 TAB TWICE
     Dates: start: 19990101
  2. LEVAQUIN [Suspect]
     Indication: SINUSITIS
     Dosage: 500 MG (500 MG), ORAL
     Route: 048
     Dates: start: 20041211, end: 20041211
  3. ADVAIR DISKUS 100/50 [Concomitant]
  4. SINGULAIR [Concomitant]
  5. PREDNISONE [Concomitant]
  6. NEURONTIN [Concomitant]
  7. ZYRTEC [Concomitant]
  8. ALBUTEROL [Concomitant]
  9. NASONEX [Concomitant]
  10. MIDRIN (DICHLORALPHENAZONE, ISOMETHEPTENE, PARACETAMOL) [Concomitant]
  11. OCEAN (BENZYL ALCOHOL, SODIUM CHLORIDE) [Concomitant]
  12. PROVENTIL PLUS (BROMHEXINE HYDROCHLORIDE, GUAIFENESIN, SALBUTAMOL) [Concomitant]

REACTIONS (12)
  - ABDOMINAL PAIN UPPER [None]
  - ARTHRALGIA [None]
  - ASTHMA [None]
  - DRUG HYPERSENSITIVITY [None]
  - DYSPHAGIA [None]
  - DYSPNOEA [None]
  - ERYTHEMA [None]
  - FEELING HOT [None]
  - MALAISE [None]
  - SINUSITIS [None]
  - SPEECH DISORDER [None]
  - THROAT IRRITATION [None]
